FAERS Safety Report 7484093-3 (Version None)
Quarter: 2011Q2

REPORT INFORMATION
  Report Type: 
  Country: None (occurrence: None)
  Receive Date: 20110517
  Receipt Date: 20110506
  Transmission Date: 20111010
  Serious: Yes (Hospitalization, Other)
  Sender: FDA-Public Use
  Company Number: US-BAYER-201023999NA

PATIENT
  Age: 36 Year
  Sex: Female
  Weight: 54.422 kg

DRUGS (3)
  1. YAZ [Suspect]
     Indication: PREMENSTRUAL SYNDROME
     Route: 048
     Dates: start: 20060607, end: 20060625
  2. HYDROCHLOROTHIAZIDE [Concomitant]
     Dosage: UNK UNK, QD
  3. EFFEXOR [Concomitant]
     Dosage: 150 MG, QD

REACTIONS (4)
  - PAIN [None]
  - INJURY [None]
  - PULMONARY EMBOLISM [None]
  - EMOTIONAL DISTRESS [None]
